FAERS Safety Report 10916241 (Version 2)
Quarter: 2015Q1

REPORT INFORMATION
  Report Type: Spontaneous
  Country: US (occurrence: US)
  Receive Date: 20150316
  Receipt Date: 20150319
  Transmission Date: 20150721
  Serious: Yes (Hospitalization)
  Sender: FDA-Public Use
  Company Number: US-BAXTER-2015BAX012930

PATIENT
  Age: 62 Year
  Sex: Male

DRUGS (1)
  1. 0.9% SODIUM CHLORIDE INJECTION [Suspect]
     Active Substance: SODIUM CHLORIDE
     Indication: HAEMODIALYSIS
     Dosage: 1 BAG PER DAY
     Route: 065
     Dates: start: 2013

REACTIONS (2)
  - Treatment noncompliance [Unknown]
  - Fluid overload [Recovering/Resolving]

NARRATIVE: CASE EVENT DATE: 20150224
